FAERS Safety Report 9671188 (Version 2)
Quarter: 2014Q1

REPORT INFORMATION
  Report Type: Report from Study
  Country: JP (occurrence: JP)
  Receive Date: 20131106
  Receipt Date: 20140123
  Transmission Date: 20141002
  Serious: Yes (Death, Other)
  Sender: FDA-Public Use
  Company Number: JP-ASTELLAS-2013US011531

PATIENT
  Age: 68 Year
  Sex: Male

DRUGS (14)
  1. ERLOTINIB TABLET [Suspect]
     Indication: PANCREATIC CARCINOMA
     Dosage: 100 MG, UID/QD
     Route: 048
     Dates: start: 20111128, end: 20120301
  2. GEMCITABINE /01215702/ [Suspect]
     Indication: PANCREATIC CARCINOMA
     Dosage: 1000 MG/M2, UID/QD
     Route: 041
     Dates: start: 20111117, end: 20111117
  3. GEMCITABINE /01215702/ [Suspect]
     Dosage: 1000 MG/M2, UID/QD
     Route: 041
     Dates: start: 20111124, end: 20111124
  4. GEMCITABINE /01215702/ [Suspect]
     Dosage: 1000 MG/M2, UID/QD
     Route: 041
     Dates: start: 20111201, end: 20111201
  5. GEMCITABINE /01215702/ [Suspect]
     Dosage: 800 MG/M2, UID/QD
     Route: 041
     Dates: start: 20111215, end: 20111215
  6. GEMCITABINE /01215702/ [Suspect]
     Dosage: 800 MG/M2, UID/QD
     Route: 041
     Dates: start: 20111222, end: 20111222
  7. GEMCITABINE /01215702/ [Suspect]
     Dosage: 800 MG/M2, UID/QD
     Route: 041
     Dates: start: 20120106, end: 20120106
  8. GEMCITABINE /01215702/ [Suspect]
     Dosage: 800 MG/M2, UID/QD
     Route: 041
     Dates: start: 20120113, end: 20120113
  9. GEMCITABINE /01215702/ [Suspect]
     Dosage: 800 MG/M2, UID/QD
     Route: 041
     Dates: start: 20120120, end: 20120120
  10. GEMCITABINE /01215702/ [Suspect]
     Dosage: 800 MG/M2, UID/QD
     Route: 041
     Dates: start: 20120203, end: 20120203
  11. GEMCITABINE /01215702/ [Suspect]
     Dosage: 800 MG/M2, UID/QD
     Route: 041
     Dates: start: 20120210, end: 20120210
  12. GEMCITABINE /01215702/ [Suspect]
     Dosage: 800 MG/M2, UID/QD
     Route: 041
     Dates: start: 20120217, end: 20120217
  13. LOXOPROFEN SODIUM [Concomitant]
     Indication: PRODUCT USED FOR UNKNOWN INDICATION
     Dosage: 180 MG, UID/QD
     Route: 048
     Dates: start: 20120515
  14. LANSOPRAZOLE [Concomitant]
     Indication: PRODUCT USED FOR UNKNOWN INDICATION
     Dosage: 15 MG, UID/QD
     Route: 048
     Dates: start: 20120515

REACTIONS (5)
  - Hypoxia [Unknown]
  - Malignant neoplasm progression [Fatal]
  - Interstitial lung disease [Recovered/Resolved]
  - Crepitations [Unknown]
  - Acne [Recovered/Resolved]
